FAERS Safety Report 6524708-7 (Version None)
Quarter: 2009Q4

REPORT INFORMATION
  Report Type: 
  Country: None (occurrence: None)
  Receive Date: 20091230
  Receipt Date: 20091230
  Transmission Date: 20100525
  Serious: Yes (Disabling, Other)
  Sender: FDA-Public Use
  Company Number: None

PATIENT
  Age: 79 Year
  Sex: Female
  Weight: 83 kg

DRUGS (8)
  1. SIMVASTATIN [Suspect]
     Indication: BLOOD CHOLESTEROL INCREASED
     Dosage: ORAL
     Dates: start: 20060404, end: 20080730
  2. RAMIPRIL [Concomitant]
  3. AMLODIPINE [Concomitant]
  4. ATENOLOL [Concomitant]
  5. BUMETANIDE [Concomitant]
  6. GLIBENCLAMIDE [Concomitant]
  7. METFORMIN HCL [Concomitant]
  8. ROSIGLITAZONE [Concomitant]

REACTIONS (1)
  - PLEURAL EFFUSION [None]
